FAERS Safety Report 23548586 (Version 1)
Quarter: 2024Q1

REPORT INFORMATION
  Report Type: Spontaneous
  Country: US (occurrence: None)
  Receive Date: 20240219
  Receipt Date: 20240219
  Transmission Date: 20240410
  Serious: Yes (Other)
  Sender: FDA-Public Use
  Company Number: None

PATIENT
  Age: 70 Year
  Sex: Female
  Weight: 74 kg

DRUGS (1)
  1. KORSUVA [Suspect]
     Active Substance: DIFELIKEFALIN ACETATE
     Indication: Pruritus
     Dosage: FREQUENCY : 3 TIMES A WEEK;?
     Route: 040
     Dates: start: 20240130, end: 20240216

REACTIONS (5)
  - Migraine [None]
  - Myalgia [None]
  - Pain in extremity [None]
  - Gait disturbance [None]
  - Dysarthria [None]

NARRATIVE: CASE EVENT DATE: 20240216
